FAERS Safety Report 10551229 (Version 7)
Quarter: 2015Q3

REPORT INFORMATION
  Report Type: Report from Study
  Country: US (occurrence: US)
  Receive Date: 20141029
  Receipt Date: 20150826
  Transmission Date: 20151125
  Serious: Yes (Life-Threatening, Hospitalization, Other)
  Sender: FDA-Public Use
  Company Number: US-ELI_LILLY_AND_COMPANY-US201410006639

PATIENT
  Age: 50 Year
  Sex: Female
  Weight: 59.3 kg

DRUGS (13)
  1. LANSOPRAZOLE. [Concomitant]
     Active Substance: LANSOPRAZOLE
     Indication: DYSPEPSIA
     Dosage: 15 MG, UNK
     Route: 048
     Dates: start: 20140905
  2. LACTULOSE. [Concomitant]
     Active Substance: LACTULOSE
     Indication: CONSTIPATION
     Dosage: 30 ML, UNK
     Route: 048
     Dates: start: 20140926
  3. ONDANSETRON [Concomitant]
     Active Substance: ONDANSETRON
     Indication: NAUSEA
     Dosage: 8 MG, UNK
     Route: 042
     Dates: start: 20140925
  4. BLOOD, WHOLE [Concomitant]
     Active Substance: WHOLE BLOOD
     Indication: ANAEMIA
     Dosage: 300 ML, UNK
     Route: 042
     Dates: start: 20140917, end: 20140920
  5. GEMCITABINE HYDROCHLORIDE. [Suspect]
     Active Substance: GEMCITABINE HYDROCHLORIDE
     Dosage: 1610 MG, CYCLICAL
     Route: 042
     Dates: start: 20141001
  6. GEMCITABINE HYDROCHLORIDE. [Suspect]
     Active Substance: GEMCITABINE HYDROCHLORIDE
     Dosage: 500 MG, CYCLICAL
     Route: 042
     Dates: start: 20141029, end: 20141029
  7. IBUPROFEN. [Concomitant]
     Active Substance: IBUPROFEN
     Indication: PAIN
     Dosage: 400 MG, UNK
     Route: 048
     Dates: start: 20140827
  8. GEMCITABINE HYDROCHLORIDE. [Suspect]
     Active Substance: GEMCITABINE HYDROCHLORIDE
     Indication: FEMALE REPRODUCTIVE NEOPLASM
     Dosage: UNK UNK, CYCLICAL
     Route: 042
     Dates: start: 20140924
  9. DEXAMETHASONE. [Concomitant]
     Active Substance: DEXAMETHASONE
     Indication: PAIN
     Dosage: 2 MG, UNK
     Route: 048
     Dates: start: 20140917, end: 20141006
  10. LIDOCAINE. [Concomitant]
     Active Substance: LIDOCAINE
     Indication: PAIN PROPHYLAXIS
     Dosage: UNK
     Route: 061
     Dates: start: 20140924
  11. DEXAMETHASONE. [Concomitant]
     Active Substance: DEXAMETHASONE
     Indication: TUMOUR ASSOCIATED FEVER
  12. OXYCODONE [Concomitant]
     Active Substance: OXYCODONE
     Indication: PAIN MANAGEMENT
     Dosage: UNK
     Route: 048
     Dates: start: 20140917
  13. LORAZEPAM. [Concomitant]
     Active Substance: LORAZEPAM
     Indication: NAUSEA
     Dosage: 0.5 MG, UNK
     Route: 048
     Dates: start: 20141001

REACTIONS (18)
  - Thrombotic microangiopathy [Unknown]
  - Pyrexia [Recovered/Resolved]
  - Thrombotic thrombocytopenic purpura [Unknown]
  - Thrombocytopenia [Recovered/Resolved]
  - Blood bilirubin increased [Not Recovered/Not Resolved]
  - Vomiting [Recovered/Resolved]
  - Hypotension [Unknown]
  - Hyponatraemia [Not Recovered/Not Resolved]
  - Haemolytic uraemic syndrome [Unknown]
  - Thrombocytopenia [Recovered/Resolved]
  - Malaise [Not Recovered/Not Resolved]
  - Nausea [Not Recovered/Not Resolved]
  - Vomiting [Not Recovered/Not Resolved]
  - Fatigue [Not Recovered/Not Resolved]
  - Nausea [Recovered/Resolved]
  - Acute kidney injury [Not Recovered/Not Resolved]
  - Blood bilirubin increased [Recovered/Resolved]
  - Dehydration [Unknown]

NARRATIVE: CASE EVENT DATE: 20141006
